FAERS Safety Report 21712900 (Version 1)
Quarter: 2022Q4

REPORT INFORMATION
  Report Type: Spontaneous
  Country: US (occurrence: US)
  Receive Date: 20221212
  Receipt Date: 20221212
  Transmission Date: 20230113
  Serious: No
  Sender: FDA-Public Use
  Company Number: US-SA-SAC20221207000564

PATIENT
  Sex: Male

DRUGS (1)
  1. DUPIXENT [Suspect]
     Active Substance: DUPILUMAB
     Indication: Eosinophilic oesophagitis
     Dosage: 300 MG, QW
     Route: 058
     Dates: start: 20221128

REACTIONS (5)
  - Injection site mass [Not Recovered/Not Resolved]
  - Erythema [Unknown]
  - Condition aggravated [Unknown]
  - Pruritus [Unknown]
  - Injection site erythema [Not Recovered/Not Resolved]
